FAERS Safety Report 10024898 (Version 2)
Quarter: 2014Q1

REPORT INFORMATION
  Report Type: Report from Study
  Country: CN (occurrence: CN)
  Receive Date: 20140320
  Receipt Date: 20140325
  Transmission Date: 20141002
  Serious: Yes (Death, Hospitalization)
  Sender: FDA-Public Use
  Company Number: CN-ROCHE-1366001

PATIENT
  Age: 41 Year
  Sex: Male
  Weight: 58 kg

DRUGS (4)
  1. VEMURAFENIB [Suspect]
     Indication: METASTATIC MALIGNANT MELANOMA
     Route: 048
     Dates: start: 20130817, end: 20140313
  2. VEMURAFENIB [Suspect]
     Indication: MALIGNANT MELANOMA
  3. COZAAR [Concomitant]
     Indication: HYPERTENSION
     Route: 048
  4. URSODEOXYCHOLIC ACID [Concomitant]
     Indication: BLOOD BILIRUBIN INCREASED
     Route: 048
     Dates: start: 20131009

REACTIONS (1)
  - Somnolence [Fatal]
